FAERS Safety Report 17823324 (Version 8)
Quarter: 2021Q2

REPORT INFORMATION
  Report Type: Report from Study
  Country: ES (occurrence: ES)
  Receive Date: 20200526
  Receipt Date: 20210622
  Transmission Date: 20210717
  Serious: Yes (Hospitalization)
  Sender: FDA-Public Use
  Company Number: NVSC2020ES028429

PATIENT
  Age: 61 Year
  Sex: Male
  Weight: 95.4 kg

DRUGS (7)
  1. MAGNOGENE [Concomitant]
     Indication: GENERAL PHYSICAL CONDITION
     Dosage: 250 MG/M2, QD
     Route: 065
     Dates: start: 20200113, end: 20200117
  2. ALOPURINOL [Concomitant]
     Active Substance: ALLOPURINOL
     Indication: PROPHYLAXIS
     Dosage: UNK
     Route: 065
     Dates: start: 20200108, end: 20200220
  3. ONDANSETRON [Concomitant]
     Active Substance: ONDANSETRON
     Indication: PROPHYLAXIS OF NAUSEA AND VOMITING
     Dosage: UNK
     Route: 065
     Dates: start: 20200113
  4. DEXAMETHASONE. [Suspect]
     Active Substance: DEXAMETHASONE
     Indication: B-CELL LYMPHOMA
     Dosage: 160 MG, QD
     Route: 048
     Dates: start: 20200114
  5. RITUXIMAB. [Suspect]
     Active Substance: RITUXIMAB
     Indication: B-CELL LYMPHOMA
     Dosage: 840 MG, ONCE/SINGLE
     Route: 042
     Dates: start: 20200114
  6. CISPLATIN. [Suspect]
     Active Substance: CISPLATIN
     Indication: B-CELL LYMPHOMA
     Dosage: 168 MG, ONCE/SINGLE
     Route: 042
     Dates: start: 20200114
  7. GEMCITABINE. [Suspect]
     Active Substance: GEMCITABINE
     Indication: NON-HODGKIN^S LYMPHOMA REFRACTORY
     Dosage: 2240 MG, ONCE/SINGLE
     Route: 042
     Dates: start: 20200114, end: 20200121

REACTIONS (3)
  - Headache [Recovered/Resolved]
  - Neurotoxicity [Recovered/Resolved]
  - Dysarthria [Recovered/Resolved]

NARRATIVE: CASE EVENT DATE: 20200119
